FAERS Safety Report 9342908 (Version 8)
Quarter: 2013Q3

REPORT INFORMATION
  Report Type: Report from Study
  Country: US (occurrence: US)
  Receive Date: 20130611
  Receipt Date: 20130916
  Transmission Date: 20140515
  Serious: Yes (Hospitalization, Other)
  Sender: FDA-Public Use
  Company Number: US-ACTELION-A-NJ2013-81363

PATIENT
  Age: 77 Year
  Sex: Female

DRUGS (2)
  1. TRACLEER [Suspect]
     Indication: PULMONARY ARTERIAL HYPERTENSION
     Dosage: UNK
     Route: 048
  2. TYVASO [Concomitant]

REACTIONS (8)
  - Toe amputation [Unknown]
  - Peripheral vascular disorder [Recovering/Resolving]
  - Vascular occlusion [Recovering/Resolving]
  - Peripheral artery stent insertion [Recovering/Resolving]
  - Asthma [Recovering/Resolving]
  - Muscular weakness [Unknown]
  - Gait disturbance [Unknown]
  - Dyspnoea exertional [Unknown]
